FAERS Safety Report 5483709-0 (Version None)
Quarter: 2007Q4

REPORT INFORMATION
  Report Type: 
  Country: None (occurrence: None)
  Receive Date: 20071012
  Receipt Date: 20070927
  Transmission Date: 20080405
  Serious: Yes (Hospitalization)
  Sender: FDA-Public Use
  Company Number: JP-GENENTECH-249162

PATIENT
  Sex: Female
  Weight: 36 kg

DRUGS (10)
  1. BEVACIZUMAB [Suspect]
     Indication: COLORECTAL CANCER METASTATIC
     Dosage: 4.8 MG/KG, UNK
     Route: 042
     Dates: start: 20070621
  2. IRINOTECAN HCL [Suspect]
     Indication: COLORECTAL CANCER METASTATIC
     Dosage: 149 MG/M2, UNK
     Route: 042
     Dates: start: 20070621
  3. FLUOROURACIL [Suspect]
     Indication: COLORECTAL CANCER METASTATIC
     Dosage: 393 MG/M2, UNK
     Route: 042
     Dates: start: 20070621
  4. ISOVORIN [Suspect]
     Indication: COLORECTAL CANCER METASTATIC
     Dosage: 188 MG/M2, UNK
     Route: 042
     Dates: start: 20070621
  5. VOLTAREN [Suspect]
     Indication: DRUG USE FOR UNKNOWN INDICATION
     Route: 054
     Dates: end: 20070621
  6. HALCION [Concomitant]
     Indication: DRUG USE FOR UNKNOWN INDICATION
  7. FOSAMAX [Concomitant]
     Indication: DRUG USE FOR UNKNOWN INDICATION
  8. NASEA (JAPAN) [Concomitant]
     Indication: DRUG USE FOR UNKNOWN INDICATION
  9. CHINESE MEDICINE [Concomitant]
     Indication: DRUG USE FOR UNKNOWN INDICATION
  10. SELBEX [Concomitant]
     Indication: DRUG USE FOR UNKNOWN INDICATION
     Dates: start: 20070720

REACTIONS (3)
  - ANAEMIA [None]
  - WEIGHT DECREASED [None]
  - WHITE BLOOD CELL COUNT DECREASED [None]
